FAERS Safety Report 16084096 (Version 1)
Quarter: 2019Q1

REPORT INFORMATION
  Report Type: Spontaneous
  Country: US (occurrence: US)
  Receive Date: 20190318
  Receipt Date: 20190318
  Transmission Date: 20190418
  Serious: Yes (Other)
  Sender: FDA-Public Use
  Company Number: US-PFIZER INC-2019109447

PATIENT
  Sex: Female

DRUGS (1)
  1. LYRICA [Suspect]
     Active Substance: PREGABALIN
     Dosage: UNK
     Dates: start: 2019, end: 2019

REACTIONS (6)
  - Throat tightness [Recovered/Resolved]
  - Eye disorder [Recovered/Resolved]
  - Vision blurred [Recovered/Resolved]
  - Oedema [Recovered/Resolved]
  - Drug hypersensitivity [Recovered/Resolved]
  - Confusional state [Recovered/Resolved]

NARRATIVE: CASE EVENT DATE: 2019
